FAERS Safety Report 4981287-3 (Version None)
Quarter: 2006Q1

REPORT INFORMATION
  Report Type: 
  Country: None (occurrence: None)
  Receive Date: 20060317
  Receipt Date: 20060331
  Transmission Date: 20060701
  Serious: Yes (Other)
  Sender: FDA-Public Use
  Company Number: WSDF_00534

PATIENT
  Sex: Female

DRUGS (2)
  1. WINRHO SDF [Suspect]
  2. WINRHO SDF [Suspect]

REACTIONS (1)
  - ANTI FACTOR XI ANTIBODY POSITIVE [None]
